FAERS Safety Report 16793894 (Version 1)
Quarter: 2019Q3

REPORT INFORMATION
  Report Type: Spontaneous
  Country: US (occurrence: US)
  Receive Date: 20190911
  Receipt Date: 20190911
  Transmission Date: 20191005
  Serious: Yes (Hospitalization, Other)
  Sender: FDA-Public Use
  Company Number: US-HIKMA PHARMACEUTICALS USA INC.-US-H14001-19-04818

PATIENT
  Age: 3 Year
  Sex: Male
  Weight: 20 kg

DRUGS (4)
  1. FENTANYL. [Suspect]
     Active Substance: FENTANYL
     Indication: ANALGESIC THERAPY
     Dosage: POD 0-2: MAX DOSE 5 MCG/KG/H
     Route: 065
  2. HYDROMORPHONE [Suspect]
     Active Substance: HYDROMORPHONE
     Indication: ANALGESIC THERAPY
     Dosage: POD 2-26: MAX DOSE 0.2 MG/H BASAL WITH 0.2 MG BOLUS PRN AS NECESSERY
     Route: 065
  3. HYDROMORPHONE [Suspect]
     Active Substance: HYDROMORPHONE
     Indication: ANALGESIC THERAPY
  4. DEXMEDETOMIDINE. [Concomitant]
     Active Substance: DEXMEDETOMIDINE
     Indication: SEDATION
     Dosage: POD 0-23 AT MAXIMUM DOSE 1 MCG/KG/H
     Route: 065

REACTIONS (1)
  - Postoperative ileus [Recovered/Resolved]
